FAERS Safety Report 19465731 (Version 3)
Quarter: 2023Q1

REPORT INFORMATION
  Report Type: Report from Study
  Country: US (occurrence: US)
  Receive Date: 20210626
  Receipt Date: 20230221
  Transmission Date: 20230417
  Serious: No
  Sender: FDA-Public Use
  Company Number: US-TAKEDA-2021TUS039450

PATIENT
  Sex: Male

DRUGS (1)
  1. PONATINIB [Suspect]
     Active Substance: PONATINIB
     Indication: Chronic myeloid leukaemia recurrent
     Dosage: 45 MILLIGRAM, QD
     Route: 065
     Dates: end: 20210610

REACTIONS (2)
  - Adverse event [Unknown]
  - Product dose omission issue [Unknown]
